FAERS Safety Report 14630143 (Version 3)
Quarter: 2018Q3

REPORT INFORMATION
  Report Type: Spontaneous
  Country: US (occurrence: US)
  Receive Date: 20180313
  Receipt Date: 20180716
  Transmission Date: 20181010
  Serious: Yes (Other)
  Sender: FDA-Public Use
  Company Number: US-PFIZER INC-2018099078

PATIENT
  Age: 65 Year
  Sex: Male

DRUGS (1)
  1. XELJANZ [Suspect]
     Active Substance: TOFACITINIB CITRATE
     Indication: COLITIS ULCERATIVE
     Dosage: 5 MG, UNK [X60]
     Dates: start: 201801

REACTIONS (7)
  - Intestinal haemorrhage [Recovering/Resolving]
  - Pain [Unknown]
  - Blood glucose increased [Unknown]
  - Blood triglycerides increased [Unknown]
  - Fatigue [Unknown]
  - Hepatic steatosis [Unknown]
  - Insomnia [Unknown]

NARRATIVE: CASE EVENT DATE: 20180307
